FAERS Safety Report 4338715-6 (Version None)
Quarter: 2004Q2

REPORT INFORMATION
  Report Type: 
  Country: None (occurrence: None)
  Receive Date: 20040409
  Receipt Date: 20040329
  Transmission Date: 20050107
  Serious: Yes (Other)
  Sender: FDA-Public Use
  Company Number: T04-USA-01381-01

PATIENT
  Age: 71 Year
  Sex: Male
  Weight: 108.8633 kg

DRUGS (11)
  1. CELEXA [Suspect]
     Indication: DEPRESSION
     Dosage: 20 MG BID PO
     Route: 048
     Dates: start: 20011001
  2. LENOXIN (DIGOXIN) [Concomitant]
  3. CORDARONE [Concomitant]
  4. ZOCOR [Concomitant]
  5. NORVASC [Concomitant]
  6. IMURAN [Concomitant]
  7. PREDNISONE [Concomitant]
  8. CIPRO [Concomitant]
  9. SYNTHROID [Concomitant]
  10. SYNTHROID [Concomitant]
  11. ASPIRIN [Concomitant]

REACTIONS (3)
  - CAROTID ARTERY DISEASE [None]
  - HEMIPARESIS [None]
  - INFARCTION [None]
